FAERS Safety Report 8992833 (Version 2)
Quarter: 2013Q1

REPORT INFORMATION
  Report Type: Spontaneous
  Country: US (occurrence: US)
  Receive Date: 20130102
  Receipt Date: 20130122
  Transmission Date: 20140127
  Serious: No
  Sender: FDA-Public Use
  Company Number: US-009507513-1212USA006311

PATIENT
  Age: 61 None
  Sex: Female

DRUGS (8)
  1. PROVENTIL [Suspect]
     Indication: DYSPNOEA
     Dosage: 2 PUFFS IN AM, 2 PUFFS IN PM
     Route: 055
     Dates: start: 20121127
  2. ADVAIR [Concomitant]
  3. SPIRIVA [Concomitant]
  4. METOPROLOL [Concomitant]
  5. LISINOPRIL [Concomitant]
  6. ATORVASTATIN [Concomitant]
  7. SPIRONOLACTONE [Concomitant]
  8. AFLOFARM VITA MINER [Concomitant]

REACTIONS (5)
  - Increased upper airway secretion [Not Recovered/Not Resolved]
  - Somnolence [Not Recovered/Not Resolved]
  - Cough [Not Recovered/Not Resolved]
  - Drug dose omission [Unknown]
  - Product quality issue [Unknown]
